FAERS Safety Report 7699074-4 (Version None)
Quarter: 2011Q3

REPORT INFORMATION
  Report Type: 
  Country: None (occurrence: None)
  Receive Date: 20110819
  Receipt Date: 20110815
  Transmission Date: 20111222
  Serious: Yes (Hospitalization, Other)
  Sender: FDA-Public Use
  Company Number: US-ELI_LILLY_AND_COMPANY-US200910004068

PATIENT
  Sex: Female
  Weight: 68.027 kg

DRUGS (2)
  1. CYMBALTA [Concomitant]
     Indication: DEPRESSION
     Dosage: 60 MG, UNK
  2. BYETTA [Suspect]
     Dosage: UNK
     Dates: start: 20070901, end: 20080501

REACTIONS (3)
  - PANCREATITIS RELAPSING [None]
  - RENAL DISORDER [None]
  - PANCREATITIS ACUTE [None]
